FAERS Safety Report 7736826-6 (Version None)
Quarter: 2011Q3

REPORT INFORMATION
  Report Type: 
  Country: None (occurrence: None)
  Receive Date: 20110908
  Receipt Date: 20110908
  Transmission Date: 20111222
  Serious: Yes (Hospitalization)
  Sender: FDA-Public Use
  Company Number: None

PATIENT
  Age: 69 Year
  Sex: Female
  Weight: 65.317 kg

DRUGS (4)
  1. COMPAZINE [Concomitant]
     Route: 048
  2. BACTRIM DS [Concomitant]
     Route: 048
  3. ZOFRAN [Concomitant]
     Route: 048
  4. TEMOZOLOMIDE [Suspect]
     Indication: GLIOBLASTOMA
     Dosage: 125MG
     Route: 048
     Dates: start: 20110714, end: 20110823

REACTIONS (4)
  - FALL [None]
  - CENTRAL NERVOUS SYSTEM NECROSIS [None]
  - BRAIN OEDEMA [None]
  - CONVULSION [None]
